FAERS Safety Report 4794835-3 (Version None)
Quarter: 2005Q3

REPORT INFORMATION
  Report Type: 
  Country: None (occurrence: None)
  Receive Date: 20050914
  Receipt Date: 20040903
  Transmission Date: 20060218
  Serious: Yes (Death, Hospitalization, Other)
  Sender: FDA-Public Use
  Company Number: 163-20785-04090122

PATIENT
  Age: 68 Year
  Sex: Male
  Weight: 75 kg

DRUGS (6)
  1. THALOMID [Suspect]
     Indication: METASTATIC MALIGNANT MELANOMA
     Dosage: 200 MG, DAILY, ORAL
     Route: 048
     Dates: start: 20040804, end: 20040819
  2. TEMOZOLOMIDE (TEMOZOLOMIDE) [Suspect]
     Indication: METASTATIC MALIGNANT MELANOMA
     Dosage: 75 MG/M2, DAILY, ORAL
     Route: 048
     Dates: start: 20040804, end: 20040823
  3. BEXTRA [Concomitant]
  4. LIDODERM [Concomitant]
  5. OXYCODONE [Concomitant]
  6. OXYCONTIN [Concomitant]

REACTIONS (11)
  - CHEST PAIN [None]
  - DEATH [None]
  - DEHYDRATION [None]
  - DISEASE PROGRESSION [None]
  - DYSPNOEA [None]
  - EMBOLISM [None]
  - FATIGUE [None]
  - OEDEMA PERIPHERAL [None]
  - RASH MACULO-PAPULAR [None]
  - SOMNOLENCE [None]
  - TACHYCARDIA [None]
